FAERS Safety Report 12727370 (Version 1)
Quarter: 2016Q3

REPORT INFORMATION
  Report Type: Spontaneous
  Country: NL (occurrence: NL)
  Receive Date: 20160909
  Receipt Date: 20160909
  Transmission Date: 20161109
  Serious: Yes (Death, Other)
  Sender: FDA-Public Use
  Company Number: NL-AMGEN-NLDSP2016120585

PATIENT
  Age: 63 Year
  Sex: Male
  Weight: 106 kg

DRUGS (3)
  1. PANITUMUMAB [Suspect]
     Active Substance: PANITUMUMAB
     Indication: METASTASES TO LIVER
  2. PANITUMUMAB [Suspect]
     Active Substance: PANITUMUMAB
     Indication: COLON CANCER METASTATIC
     Dosage: UNK (6MG/KG DILUTED IN 100ML SODIUM CHLORIDE SOLUTION)
     Route: 065
     Dates: start: 201305
  3. REGORAFENIB [Concomitant]
     Active Substance: REGORAFENIB
     Dosage: UNK
     Dates: start: 201311

REACTIONS (2)
  - Skin toxicity [Unknown]
  - Death [Fatal]

NARRATIVE: CASE EVENT DATE: 2013
